FAERS Safety Report 4679433-4 (Version None)
Quarter: 2005Q2

REPORT INFORMATION
  Report Type: 
  Country: None (occurrence: None)
  Receive Date: 20050602
  Receipt Date: 20050523
  Transmission Date: 20051028
  Serious: Yes (Hospitalization, Other)
  Sender: FDA-Public Use
  Company Number: JP-BRISTOL-MYERS SQUIBB COMPANY-12981270

PATIENT
  Age: 54 Year
  Sex: Female

DRUGS (11)
  1. ENDOXAN [Suspect]
     Indication: SYSTEMIC LUPUS ERYTHEMATOSUS
     Route: 042
     Dates: start: 20040816, end: 20040816
  2. PREDONINE [Suspect]
     Indication: SYSTEMIC LUPUS ERYTHEMATOSUS
     Route: 048
     Dates: start: 20030319
  3. MEVALOTIN [Concomitant]
     Dates: start: 20030319
  4. GASTER D [Concomitant]
     Dates: start: 20030816
  5. AMLODIN [Concomitant]
     Dates: start: 20040706, end: 20041124
  6. BONALEN [Concomitant]
     Dates: start: 20040713
  7. METHYLPREDNISOLONE [Concomitant]
     Dates: start: 20040721
  8. PURSENNID [Concomitant]
     Dates: start: 20040729
  9. BLOPRESS [Concomitant]
     Dates: start: 20040807, end: 20040923
  10. ITOROL [Concomitant]
     Dates: start: 20040830, end: 20041124
  11. BAYASPIRIN [Concomitant]
     Dates: start: 20040830

REACTIONS (5)
  - CYTOMEGALOVIRUS ANTIGEN POSITIVE [None]
  - ILEUS [None]
  - LUPUS NEPHRITIS [None]
  - PANCYTOPENIA [None]
  - STRONGYLOIDIASIS [None]
